FAERS Safety Report 25488138 (Version 1)
Quarter: 2025Q2

REPORT INFORMATION
  Report Type: Spontaneous
  Country: CA (occurrence: CA)
  Receive Date: 20250627
  Receipt Date: 20250627
  Transmission Date: 20250717
  Serious: Yes (Other)
  Sender: AMGEN
  Company Number: CA-AMGEN-CANSP2025125312

PATIENT
  Age: 42 Year
  Sex: Male

DRUGS (11)
  1. RITUXIMAB [Suspect]
     Active Substance: RITUXIMAB
     Indication: Burkitt^s lymphoma stage I
     Route: 065
  2. ETOPOSIDE [Concomitant]
     Active Substance: ETOPOSIDE
  3. PREDNISONE [Concomitant]
     Active Substance: PREDNISONE
  4. VINCRISTINE [Concomitant]
     Active Substance: VINCRISTINE
  5. CYCLOPHOSPHAMIDE [Concomitant]
     Active Substance: CYCLOPHOSPHAMIDE
  6. DOXORUBICIN [Concomitant]
     Active Substance: DOXORUBICIN
  7. GEMCITABINE [Concomitant]
     Active Substance: GEMCITABINE
  8. DEXAMETHASONE [Concomitant]
     Active Substance: DEXAMETHASONE
  9. CISPLATIN [Concomitant]
     Active Substance: CISPLATIN
  10. IFOSFAMIDE [Concomitant]
     Active Substance: IFOSFAMIDE
  11. CYTARABINE [Concomitant]
     Active Substance: CYTARABINE

REACTIONS (3)
  - Burkitt^s lymphoma stage I [Unknown]
  - Burkitt^s lymphoma recurrent [Unknown]
  - Therapy partial responder [Unknown]
